FAERS Safety Report 6510647-4 (Version None)
Quarter: 2009Q4

REPORT INFORMATION
  Report Type: 
  Country: None (occurrence: None)
  Receive Date: 20091222
  Receipt Date: 20091009
  Transmission Date: 20100525
  Serious: No
  Sender: FDA-Public Use
  Company Number: US-ASTRAZENECA-2009SE19689

PATIENT
  Age: 73 Year
  Sex: Female

DRUGS (8)
  1. CRESTOR [Suspect]
     Indication: BLOOD CHOLESTEROL ABNORMAL
     Route: 048
     Dates: start: 20040101, end: 20080101
  2. LIPITOR [Suspect]
     Indication: BLOOD CHOLESTEROL
  3. NEXIUM [Concomitant]
  4. NIOSPAN [Concomitant]
  5. ELAVIL [Concomitant]
  6. PRILOSEC [Concomitant]
  7. PATENOL [Concomitant]
  8. VITAMINS [Concomitant]

REACTIONS (1)
  - BURNING SENSATION [None]
